FAERS Safety Report 4886531-9 (Version None)
Quarter: 2006Q1

REPORT INFORMATION
  Report Type: 
  Country: None (occurrence: None)
  Receive Date: 20060120
  Receipt Date: 20050812
  Transmission Date: 20060701
  Serious: Yes (Hospitalization)
  Sender: FDA-Public Use
  Company Number: 200512338JP

PATIENT
  Age: 60 Year
  Sex: Male

DRUGS (4)
  1. LANTUS [Suspect]
     Indication: DIABETES MELLITUS
     Route: 058
     Dates: start: 20050719, end: 20050819
  2. OPTICLIK (INSULIN INJECTION PEN) [Suspect]
  3. ADALAT [Concomitant]
     Indication: HYPERTENSION
     Dosage: DOSE: 1 TABLET
     Route: 048
     Dates: start: 20040309, end: 20050829
  4. SERUMLIPIDREDUCING AGENTS [Concomitant]
     Indication: HYPERLIPIDAEMIA
     Dosage: DOSE: 1 TABLET
     Route: 048
     Dates: start: 20041021, end: 20050829

REACTIONS (2)
  - ANGINA PECTORIS [None]
  - CORONARY ARTERY STENOSIS [None]
